FAERS Safety Report 9593681 (Version 2)
Quarter: 2013Q4

REPORT INFORMATION
  Report Type: Spontaneous
  Country: US (occurrence: US)
  Receive Date: 20131004
  Receipt Date: 20131004
  Transmission Date: 20140711
  Serious: No
  Sender: FDA-Public Use
  Company Number: US-PURDUE-USA-2012-0088763

PATIENT
  Sex: Female
  Weight: 56.69 kg

DRUGS (2)
  1. BUTRANS [Suspect]
     Indication: NECK PAIN
     Dosage: 10 MCG, UNK
     Route: 062
     Dates: start: 20120116, end: 20120404
  2. OXYCODONE                          /00045603/ [Concomitant]
     Indication: BREAKTHROUGH PAIN
     Dosage: 10/325, BID
     Route: 065

REACTIONS (1)
  - Application site rash [Recovered/Resolved]
